FAERS Safety Report 6907792-8 (Version None)
Quarter: 2010Q3

REPORT INFORMATION
  Report Type: 
  Country: None (occurrence: None)
  Receive Date: 20100805
  Receipt Date: 20100802
  Transmission Date: 20110219
  Serious: Yes (Death, Other)
  Sender: FDA-Public Use
  Company Number: US-ASTRAZENECA-2007UW03173

PATIENT
  Age: 420 Month
  Sex: Male
  Weight: 104.3 kg

DRUGS (12)
  1. SEROQUEL [Suspect]
     Indication: ANXIETY
     Dosage: 300 - 600 MG
     Route: 048
     Dates: start: 20050101, end: 20060601
  2. SEROQUEL [Suspect]
     Indication: SLEEP DISORDER
     Dosage: 300 - 600 MG
     Route: 048
     Dates: start: 20050101, end: 20060601
  3. SEROQUEL [Suspect]
     Dosage: 300 MG TO 600 MG
     Route: 048
     Dates: start: 20060209, end: 20060601
  4. SEROQUEL [Suspect]
     Dosage: 300 MG TO 600 MG
     Route: 048
     Dates: start: 20060209, end: 20060601
  5. PROZAC [Concomitant]
     Indication: DEPRESSION
     Dates: start: 19990118
  6. PROZAC [Concomitant]
     Indication: ANXIETY
     Dates: start: 19990118
  7. NAPROXEN [Concomitant]
     Dosage: 500 MG EVERY 12 HOURS AS NEEDED
     Dates: start: 20060209
  8. TRAZODONE HCL [Concomitant]
     Dates: start: 20060613
  9. METFORMIN HCL [Concomitant]
     Dosage: 500 MG TO 1500 MG
     Dates: start: 20060511
  10. GEMFIBROZIL [Concomitant]
     Indication: HYPERLIPIDAEMIA
     Dates: start: 20060511
  11. ULTRAM [Concomitant]
     Indication: INCISIONAL HERNIA
     Dates: start: 20050630
  12. ULTRAM [Concomitant]
     Indication: HERNIA PAIN
     Dates: start: 20050630

REACTIONS (10)
  - BLOOD CHOLESTEROL INCREASED [None]
  - BLOOD TRIGLYCERIDES INCREASED [None]
  - DEATH [None]
  - DIABETES MELLITUS [None]
  - DIABETIC COMA [None]
  - DIABETIC KETOACIDOSIS [None]
  - HYPERGLYCAEMIA [None]
  - HYPERLIPIDAEMIA [None]
  - PANCREATITIS [None]
  - TYPE 2 DIABETES MELLITUS [None]
